FAERS Safety Report 25587098 (Version 1)
Quarter: 2025Q3

REPORT INFORMATION
  Report Type: Spontaneous
  Country: US (occurrence: US)
  Receive Date: 20250721
  Receipt Date: 20250721
  Transmission Date: 20251020
  Serious: No
  Sender: Phathom Pharmaceuticals
  Company Number: US-PHATHOM PHARMACEUTICALS INC.-2025PHT01365

PATIENT
  Age: 77 Year
  Sex: Male

DRUGS (6)
  1. VOQUEZNA [Suspect]
     Active Substance: VONOPRAZAN FUMARATE
     Dosage: 20 MG, 1X/DAY
     Route: 048
     Dates: start: 20241216, end: 20250528
  2. FINASTERIDE [Concomitant]
     Active Substance: FINASTERIDE
  3. PROSTATE PQ [Concomitant]
  4. VITAMINS [Concomitant]
     Active Substance: VITAMINS
  5. SIMVASTATIN [Concomitant]
     Active Substance: SIMVASTATIN
  6. AMLODIPINE [Concomitant]
     Active Substance: AMLODIPINE BESYLATE

REACTIONS (4)
  - Anorectal discomfort [Unknown]
  - Abdominal distension [Unknown]
  - Dyspepsia [Unknown]
  - Abdominal pain upper [Unknown]
